FAERS Safety Report 9605014 (Version 2)
Quarter: 2013Q4

REPORT INFORMATION
  Report Type: Spontaneous
  Country: US (occurrence: US)
  Receive Date: 20131008
  Receipt Date: 20131023
  Transmission Date: 20140711
  Serious: Yes (Other)
  Sender: FDA-Public Use
  Company Number: US-PFIZER INC-2013284705

PATIENT
  Sex: Female

DRUGS (1)
  1. ATORVASTATIN CALCIUM [Suspect]
     Dosage: UNK
     Dates: start: 20120630

REACTIONS (6)
  - Hypokinesia [Unknown]
  - Pain in extremity [Unknown]
  - Myalgia [Recovered/Resolved]
  - Pain [Unknown]
  - Pruritus [Recovered/Resolved]
  - Abnormal dreams [Unknown]
